FAERS Safety Report 16432436 (Version 1)
Quarter: 2019Q3

REPORT INFORMATION
  Report Type: Spontaneous
  Country: US (occurrence: US)
  Receive Date: 20190614
  Receipt Date: 20190614
  Transmission Date: 20191004
  Serious: Yes (Hospitalization)
  Sender: FDA-Public Use
  Company Number: None

PATIENT
  Age: 40 Year
  Sex: Male

DRUGS (10)
  1. GABAPENTIN TAB 800 MG [Concomitant]
  2. TIZANIDINE TAB 2 MG [Concomitant]
  3. DALFAMPRIDINE. [Suspect]
     Active Substance: DALFAMPRIDINE
     Indication: MULTIPLE SCLEROSIS
     Route: 048
  4. CLONAZEP ODT TAB 0.25 MG [Concomitant]
  5. BACLOFEN TAB 20 MG [Concomitant]
  6. MELOXICAM TAB 15 MG [Concomitant]
  7. TRAMADOL HCL TAB 50 MG [Concomitant]
  8. AMOXICILLIN CAP 500 MG [Concomitant]
  9. ACYCLOVIR CAP 200 MG [Concomitant]
  10. MODAFINIL TAB 200 MG [Concomitant]

REACTIONS (1)
  - Intestinal obstruction [None]

NARRATIVE: CASE EVENT DATE: 20190527
